FAERS Safety Report 21303217 (Version 1)
Quarter: 2022Q3

REPORT INFORMATION
  Report Type: Spontaneous
  Country: US (occurrence: None)
  Receive Date: 20220907
  Receipt Date: 20220907
  Transmission Date: 20221027
  Serious: Yes (Death)
  Sender: FDA-Public Use
  Company Number: None

PATIENT
  Sex: Female
  Weight: 49.5 kg

DRUGS (15)
  1. REVLIMID [Suspect]
     Active Substance: LENALIDOMIDE
     Indication: Plasma cell myeloma
     Dosage: FREQUENCY : DAILY;?
     Route: 048
     Dates: start: 20210414
  2. amlodipine 2.5 mg tablet [Concomitant]
  3. Calcium 600 mg calcium (1,500 mg) tablet [Concomitant]
  4. ferrous sulfate 324 mg (65 mg iron) tablet,delayed release [Concomitant]
  5. cranberry extract 500 mg tablet [Concomitant]
  6. Hair-Skin-Nail (vit A,C-biotin-Zn-Cu) 2,500 unit-100 mg-2,500 mcg cap [Concomitant]
  7. Lomotil 2.5 mg-0.025 mg tablet [Concomitant]
  8. magnesium 30 mg tablet [Concomitant]
  9. omeprazole 20 mg tablet,delayed release [Concomitant]
  10. potassium gluconate 595 mg (99 mg) tablet [Concomitant]
  11. PROCHLORPERAZINE 10MG TABLETS [Concomitant]
  12. triamcinolone 0.1 % topical ointment and dimethicone 5 % topical cream [Concomitant]
  13. Valium 2 mg tablet [Concomitant]
  14. Vitamin D3 100 mcg (4,000 unit) capsule [Concomitant]
  15. Women^s Multivitamin 18 mg-400 mcg-500 mg-50 mcg tablet [Concomitant]

REACTIONS (1)
  - Death [None]
